FAERS Safety Report 5193826-0 (Version None)
Quarter: 2006Q4

REPORT INFORMATION
  Report Type: 
  Country: None (occurrence: None)
  Receive Date: 20061221
  Receipt Date: 20061211
  Transmission Date: 20070319
  Serious: Yes (Hospitalization)
  Sender: FDA-Public Use
  Company Number: 009454

PATIENT
  Age: 66 Year
  Sex: Female

DRUGS (10)
  1. TREXALL [Suspect]
     Indication: RHEUMATOID ARTHRITIS
     Dosage: SEE IMAGE
     Route: 048
     Dates: start: 19880101, end: 20060701
  2. TREXALL [Suspect]
     Indication: RHEUMATOID ARTHRITIS
     Dosage: SEE IMAGE
     Route: 048
     Dates: start: 20020601
  3. TREXALL [Suspect]
     Indication: RHEUMATOID ARTHRITIS
     Dosage: SEE IMAGE
     Route: 048
     Dates: start: 20061009
  4. KINERET [Suspect]
     Indication: RHEUMATOID ARTHRITIS
     Dosage: 100 MG, QD, SUBCUTANEOUS
     Route: 058
     Dates: start: 20020601
  5. LEVOTHYROINE (LEOVTHYROXINE) [Concomitant]
  6. FOLIC ACID [Concomitant]
  7. POTASSIUM (POTASSIUM) [Concomitant]
  8. ZOLPIDEM TARTRATE [Concomitant]
  9. MORPHINE [Concomitant]
  10. ACETAMINOPHEN [Concomitant]

REACTIONS (10)
  - BLOOD CREATININE INCREASED [None]
  - BLOOD UREA INCREASED [None]
  - ESCHERICHIA INFECTION [None]
  - HYDRONEPHROSIS [None]
  - PANCYTOPENIA [None]
  - PATHOGEN RESISTANCE [None]
  - PYELONEPHRITIS [None]
  - STAPHYLOCOCCAL SEPSIS [None]
  - STENT OCCLUSION [None]
  - UROSEPSIS [None]
